FAERS Safety Report 6249725-6 (Version None)
Quarter: 2009Q2

REPORT INFORMATION
  Report Type: 
  Country: None (occurrence: None)
  Receive Date: 20090629
  Receipt Date: 20090624
  Transmission Date: 20091009
  Serious: Yes (Hospitalization, Other)
  Sender: FDA-Public Use
  Company Number: FR-BRISTOL-MYERS SQUIBB COMPANY-14680599

PATIENT
  Age: 67 Year
  Sex: Male

DRUGS (13)
  1. HYDREA [Suspect]
     Indication: ESSENTIAL THROMBOCYTHAEMIA
     Dosage: 10MAR09 - 2MAY09 2 MONTHS 16MAY09 - 20MAY09 5 DAYS DOSE REDUCED TO 2/D, DECHALLENGED ON 16MAY09
     Route: 048
     Dates: start: 20090310, end: 20090520
  2. PREVISCAN [Suspect]
     Indication: PULMONARY EMBOLISM
     Dosage: INTERRUPTED ON 28APR09 RESTARTED ON 08-MAY-2009, LAST INTAKE ON 11-MAY-2009
     Dates: start: 20090128
  3. PREVISCAN [Suspect]
     Indication: THROMBOSIS
     Dosage: INTERRUPTED ON 28APR09 RESTARTED ON 08-MAY-2009, LAST INTAKE ON 11-MAY-2009
     Dates: start: 20090128
  4. RULID [Concomitant]
     Indication: LUNG DISORDER
     Dates: start: 20090323, end: 20090505
  5. CALCIPARINE [Concomitant]
     Dates: end: 20090508
  6. TAHOR [Concomitant]
     Dates: start: 20090501
  7. COUMADIN [Concomitant]
     Dates: start: 20090501
  8. TAHOR [Concomitant]
     Indication: DYSLIPIDAEMIA
     Dates: end: 20090430
  9. KARDEGIC [Concomitant]
     Dates: end: 20090502
  10. MAXEPA [Concomitant]
     Dates: end: 20090502
  11. INIPOMP [Concomitant]
     Dates: end: 20090502
  12. RULID [Concomitant]
     Indication: PNEUMONIA MYCOPLASMAL
     Dates: start: 20090323, end: 20090505
  13. CORTANCYL [Concomitant]
     Dates: start: 20090112, end: 20090417

REACTIONS (5)
  - CYTOLYTIC HEPATITIS [None]
  - EOSINOPHILIA [None]
  - PNEUMONIA MYCOPLASMAL [None]
  - RENAL FAILURE [None]
  - RENAL FAILURE ACUTE [None]
